FAERS Safety Report 13280799 (Version 1)
Quarter: 2017Q1

REPORT INFORMATION
  Report Type: Spontaneous
  Country: US (occurrence: US)
  Receive Date: 20170301
  Receipt Date: 20170301
  Transmission Date: 20170428
  Serious: No
  Sender: FDA-Public Use
  Company Number: US-INSYS THERAPEUTICS, INC-INS201604-000151

PATIENT
  Sex: Female

DRUGS (4)
  1. PHENERGAN [Concomitant]
     Active Substance: PROMETHAZINE HYDROCHLORIDE
     Indication: NAUSEA
  2. SOMA [Concomitant]
     Active Substance: CARISOPRODOL
  3. SUBSYS [Suspect]
     Active Substance: FENTANYL
     Indication: PAIN
  4. FENTANYL. [Concomitant]
     Active Substance: FENTANYL

REACTIONS (1)
  - Drug ineffective for unapproved indication [Unknown]
